FAERS Safety Report 5447296-5 (Version None)
Quarter: 2007Q3

REPORT INFORMATION
  Report Type: 
  Country: None (occurrence: None)
  Receive Date: 20070910
  Receipt Date: 20070829
  Transmission Date: 20080115
  Serious: Yes (Hospitalization)
  Sender: FDA-Public Use
  Company Number: FR-AVENTIS-200712771FR

PATIENT
  Age: 70 Year
  Sex: Male

DRUGS (7)
  1. LOVENOX [Suspect]
     Route: 058
     Dates: start: 20070413, end: 20070504
  2. INIPOMP                            /01263201/ [Suspect]
     Route: 048
     Dates: start: 20070413, end: 20070504
  3. TRIFLUCAN [Suspect]
     Dates: start: 20070423, end: 20070507
  4. LOXEN [Suspect]
     Dates: start: 20070416, end: 20070507
  5. LAROXYL [Suspect]
     Dates: start: 20070416, end: 20070507
  6. KABIVEN [Suspect]
     Route: 042
     Dates: start: 20070412, end: 20070512
  7. ROCEPHIN [Concomitant]
     Dates: start: 20070430, end: 20070507

REACTIONS (3)
  - LEUKOPENIA [None]
  - NEUTROPENIA [None]
  - THROMBOCYTOPENIA [None]
